FAERS Safety Report 6796750-2 (Version None)
Quarter: 2010Q2

REPORT INFORMATION
  Report Type: 
  Country: None (occurrence: None)
  Receive Date: 20100622
  Receipt Date: 20100615
  Transmission Date: 20101027
  Serious: Yes (Death, Hospitalization)
  Sender: FDA-Public Use
  Company Number: 2010US002177

PATIENT
  Age: 62 Year
  Sex: Male

DRUGS (3)
  1. PROGRAF [Suspect]
     Indication: LUNG TRANSPLANT
     Dosage: 2 MG, UID/QD
     Dates: start: 20090914, end: 20100610
  2. CELLCEPT [Concomitant]
  3. PREDNISONE TAB [Concomitant]

REACTIONS (1)
  - SEPSIS [None]
